FAERS Safety Report 4702556-8 (Version None)
Quarter: 2005Q2

REPORT INFORMATION
  Report Type: 
  Country: None (occurrence: None)
  Receive Date: 20050623
  Receipt Date: 20050610
  Transmission Date: 20051028
  Serious: Yes (Other)
  Sender: FDA-Public Use
  Company Number: US138508

PATIENT

DRUGS (2)
  1. ENBREL [Suspect]
     Indication: HEPATITIS ALCOHOLIC
     Dosage: 32 MG/M2, IV
     Route: 042
  2. ENBREL [Suspect]
     Indication: HEPATITIS ALCOHOLIC
     Dosage: 25 MG, 2 IN 1 WEEKS, SC
     Route: 058

REACTIONS (2)
  - HAEMORRHAGE [None]
  - PORTAL HYPERTENSIVE GASTROPATHY [None]
